FAERS Safety Report 14583647 (Version 1)
Quarter: 2018Q1

REPORT INFORMATION
  Report Type: Spontaneous
  Country: US (occurrence: US)
  Receive Date: 20180227
  Receipt Date: 20180227
  Transmission Date: 20180509
  Serious: Yes (Other)
  Sender: FDA-Public Use
  Company Number: None

PATIENT
  Sex: Female
  Weight: 76.5 kg

DRUGS (6)
  1. IRON [Concomitant]
     Active Substance: IRON
  2. DILTIAZEM. [Concomitant]
     Active Substance: DILTIAZEM
  3. SYNTHROID [Concomitant]
     Active Substance: LEVOTHYROXINE SODIUM
  4. COQ10 [Concomitant]
     Active Substance: UBIDECARENONE
  5. LA ROCHE POSAY LABORATOIRE DERMATOLOGIQUE EFFACLAR DUO ACNE TREATMENT [Suspect]
     Active Substance: BENZOYL PEROXIDE
     Indication: OIL ACNE
     Route: 061
  6. THYROID ENERGY [Concomitant]

REACTIONS (3)
  - Therapy cessation [None]
  - Hyperthyroidism [None]
  - Swelling face [None]
